FAERS Safety Report 7547695-1 (Version None)
Quarter: 2011Q2

REPORT INFORMATION
  Report Type: 
  Country: None (occurrence: None)
  Receive Date: 20110614
  Receipt Date: 20110503
  Transmission Date: 20111010
  Serious: No
  Sender: FDA-Public Use
  Company Number: US-BAYER-2011-038854

PATIENT
  Sex: Male
  Weight: 91 kg

DRUGS (4)
  1. ALEVE (CAPLET) [Suspect]
     Indication: PAIN
     Dosage: 1 DF, QD
     Route: 048
  2. GEMFIBROZIL [Concomitant]
  3. AVODART [Concomitant]
  4. LISINOPRIL [Concomitant]

REACTIONS (1)
  - EPISTAXIS [None]
